FAERS Safety Report 5622631-3 (Version None)
Quarter: 2008Q1

REPORT INFORMATION
  Report Type: 
  Country: None (occurrence: None)
  Receive Date: 20080211
  Receipt Date: 20080211
  Transmission Date: 20080703
  Serious: Yes (Hospitalization)
  Sender: FDA-Public Use
  Company Number: None

PATIENT
  Age: 58 Year
  Sex: Male

DRUGS (2)
  1. DIVALPROEX [Suspect]
     Dosage: 1500MG  HS  PO
     Route: 048
     Dates: start: 20071011, end: 20071214
  2. ALPRAZOLAM [Suspect]
     Dosage: 1MG  PO
     Route: 048
     Dates: start: 20070620, end: 20071214

REACTIONS (2)
  - CONFUSIONAL STATE [None]
  - MENTAL STATUS CHANGES [None]
